FAERS Safety Report 4425128-1 (Version None)
Quarter: 2004Q3

REPORT INFORMATION
  Report Type: 
  Country: None (occurrence: None)
  Receive Date: 20040811
  Receipt Date: 20040811
  Transmission Date: 20050211
  Serious: Yes (Hospitalization)
  Sender: FDA-Public Use
  Company Number: None

PATIENT
  Age: 77 Year
  Sex: Male
  Weight: 74 kg

DRUGS (2)
  1. FLUOROURACIL [Suspect]
     Indication: COLON CANCER METASTATIC
     Dosage: 833 MG ONCE IV
     Route: 042
     Dates: start: 20040405, end: 20040416
  2. LEUOCOVORIN 50 MG [Suspect]
     Dosage: 39 MG ONCE IV
     Route: 042
     Dates: start: 20040405, end: 20040416

REACTIONS (3)
  - DEHYDRATION [None]
  - DIARRHOEA [None]
  - ENTEROCOLITIS [None]
